FAERS Safety Report 7833729-3 (Version None)
Quarter: 2011Q4

REPORT INFORMATION
  Report Type: 
  Country: None (occurrence: None)
  Receive Date: 20111024
  Receipt Date: 20111010
  Transmission Date: 20120403
  Serious: Yes (Hospitalization)
  Sender: FDA-Public Use
  Company Number: BR-JNJFOC-20111007087

PATIENT
  Sex: Female
  Weight: 67 kg

DRUGS (5)
  1. MICARDIS HCT [Concomitant]
     Indication: HYPERTENSION
     Dosage: 80/12.5 MG
     Route: 048
  2. TYLENOL-500 [Suspect]
     Route: 048
  3. TYLENOL (CAPLET) [Suspect]
     Indication: INTERVERTEBRAL DISC PROTRUSION
     Route: 048
     Dates: start: 20110901, end: 20110901
  4. TYLENOL-500 [Suspect]
     Indication: INTERVERTEBRAL DISC PROTRUSION
     Route: 048
  5. TYLENOL (CAPLET) [Suspect]
     Route: 048

REACTIONS (2)
  - DRUG INEFFECTIVE [None]
  - HYPERSENSITIVITY [None]
